FAERS Safety Report 12115079 (Version 8)
Quarter: 2021Q1

REPORT INFORMATION
  Report Type: Spontaneous
  Country: US (occurrence: US)
  Receive Date: 20160225
  Receipt Date: 20210330
  Transmission Date: 20210419
  Serious: Yes (Congenital Anomaly, Other)
  Sender: FDA-Public Use
  Company Number: PHEH2016US004359

PATIENT
  Sex: Female

DRUGS (2)
  1. ZOFRAN [Suspect]
     Active Substance: ONDANSETRON HYDROCHLORIDE
     Indication: FOETAL EXPOSURE DURING PREGNANCY
     Route: 064
  2. ZOFRAN [Suspect]
     Active Substance: ONDANSETRON HYDROCHLORIDE
     Indication: FOETAL EXPOSURE DURING PREGNANCY
     Route: 064

REACTIONS (39)
  - Mental disorder [Unknown]
  - Pain [Unknown]
  - Obstructive airways disorder [Unknown]
  - Cerumen impaction [Unknown]
  - Skin fibrosis [Unknown]
  - Lactase deficiency [Unknown]
  - Dyspareunia [Unknown]
  - Cleft lip and palate [Unknown]
  - Tooth hypoplasia [Unknown]
  - Nose deformity [Unknown]
  - Anhedonia [Unknown]
  - Otitis media [Unknown]
  - Scar [Unknown]
  - Nasal septum deviation [Unknown]
  - Congenital anomaly [Unknown]
  - Failure to thrive [Unknown]
  - Developmental delay [Unknown]
  - Micrognathia [Unknown]
  - Anxiety [Unknown]
  - Restless legs syndrome [Unknown]
  - Rhinorrhoea [Unknown]
  - Congenital nose malformation [Unknown]
  - Malocclusion [Unknown]
  - Eating disorder [Unknown]
  - Otorrhoea [Unknown]
  - Anxiety disorder [Unknown]
  - Sleep apnoea syndrome [Unknown]
  - Seasonal allergy [Unknown]
  - Foetal exposure during pregnancy [Unknown]
  - Velopharyngeal incompetence [Unknown]
  - Snoring [Unknown]
  - Respiratory disorder [Unknown]
  - Emotional distress [Unknown]
  - Dental alveolar anomaly [Unknown]
  - Abdominal pain upper [Unknown]
  - Speech disorder developmental [Unknown]
  - Injury [Unknown]
  - Fistula [Unknown]
  - Speech disorder [Unknown]
